FAERS Safety Report 18096186 (Version 1)
Quarter: 2020Q3

REPORT INFORMATION
  Report Type: Report from Study
  Country: CA (occurrence: CA)
  Receive Date: 20200730
  Receipt Date: 20200730
  Transmission Date: 20201103
  Serious: Yes (Other)
  Sender: FDA-Public Use
  Company Number: CA-PFIZER INC-2020289214

PATIENT
  Age: 13 Year
  Sex: Male
  Weight: 69 kg

DRUGS (2)
  1. HYDROCORTISONE. [Suspect]
     Active Substance: HYDROCORTISONE
     Dosage: UNK
     Route: 065
  2. REMICADE [Suspect]
     Active Substance: INFLIXIMAB
     Indication: CROHN^S DISEASE
     Dosage: 400 MG, CYCLIC (1 EVERY 6 WEEKS)
     Route: 042

REACTIONS (3)
  - Obstruction [Unknown]
  - Malaise [Unknown]
  - Taste disorder [Unknown]
